FAERS Safety Report 25187464 (Version 1)
Quarter: 2025Q2

REPORT INFORMATION
  Report Type: Spontaneous
  Country: US (occurrence: US)
  Receive Date: 20250411
  Receipt Date: 20250411
  Transmission Date: 20250717
  Serious: Yes (Other)
  Sender: BRISTOL MYERS SQUIBB
  Company Number: US-BRISTOL-MYERS SQUIBB COMPANY-2025-053985

PATIENT
  Age: 65 Year
  Sex: Female
  Weight: 69.9 kg

DRUGS (1)
  1. REVLIMID [Suspect]
     Active Substance: LENALIDOMIDE
     Indication: Plasma cell myeloma
     Dosage: DOSE : UNKNOWN; ONCE A DAY FOR 21 DAYS AND THEN 7 DAYS OFF
     Route: 048
     Dates: start: 2024

REACTIONS (1)
  - Plasma cell myeloma [Unknown]
